FAERS Safety Report 22639444 (Version 1)
Quarter: 2023Q2

REPORT INFORMATION
  Report Type: Spontaneous
  Country: GB (occurrence: GB)
  Receive Date: 20230626
  Receipt Date: 20230626
  Transmission Date: 20230721
  Serious: Yes (Disabling)
  Sender: FDA-Public Use
  Company Number: GB-ROCHE-3370057

PATIENT
  Age: 27 Year
  Sex: Female
  Weight: 75 kg

DRUGS (1)
  1. OCRELIZUMAB [Suspect]
     Active Substance: OCRELIZUMAB
     Indication: Multiple sclerosis
     Route: 051
     Dates: start: 20211025, end: 20211026

REACTIONS (6)
  - Throat irritation [Recovered/Resolved]
  - Chills [Not Recovered/Not Resolved]
  - Ear discomfort [Recovered/Resolved]
  - Pain [Not Recovered/Not Resolved]
  - Headache [Not Recovered/Not Resolved]
  - Chills [Unknown]

NARRATIVE: CASE EVENT DATE: 20211025
